FAERS Safety Report 18101045 (Version 1)
Quarter: 2020Q3

REPORT INFORMATION
  Report Type: Spontaneous
  Country: GR (occurrence: GR)
  Receive Date: 20200731
  Receipt Date: 20200731
  Transmission Date: 20201103
  Serious: Yes (Death, Other)
  Sender: FDA-Public Use
  Company Number: GR-009507513-2007GRC012228

PATIENT
  Age: 70 Year
  Sex: Female
  Weight: 62 kg

DRUGS (16)
  1. DEPON [Concomitant]
     Active Substance: ACETAMINOPHEN
     Dosage: 500 MILLIGRAM
     Route: 048
     Dates: start: 20200330
  2. SOLU?MEDROL [Suspect]
     Active Substance: METHYLPREDNISOLONE SODIUM SUCCINATE
     Dosage: UNK
     Dates: start: 202007, end: 202007
  3. LYRICA [Concomitant]
     Active Substance: PREGABALIN
     Dosage: 50?75 MILLIGRAM
     Route: 048
     Dates: start: 20200504
  4. CUBICIN [Suspect]
     Active Substance: DAPTOMYCIN
     Indication: SEPTIC SHOCK
     Dosage: UNK
     Dates: start: 202007, end: 202007
  5. TAZOCIN (PIPERACILLIN SODIUM (+) TAZOBACTAM SODIUM) [Suspect]
     Active Substance: PIPERACILLIN SODIUM\TAZOBACTAM SODIUM
     Dosage: UNK
     Dates: start: 202007, end: 202007
  6. VONCON [Suspect]
     Active Substance: VANCOMYCIN HYDROCHLORIDE
     Dosage: UNK
     Dates: start: 202007, end: 202007
  7. MEROPENEM. [Suspect]
     Active Substance: MEROPENEM
     Dosage: UNK
     Dates: start: 202007, end: 202007
  8. TRAMETINIB [Concomitant]
     Active Substance: TRAMETINIB
     Dosage: 1 MILLIGRAM
     Route: 048
     Dates: start: 20200708, end: 20200712
  9. APROVEL [Concomitant]
     Active Substance: IRBESARTAN
     Dosage: 150 MILLIGRAM
     Route: 048
     Dates: start: 20181201
  10. FENTADUR [Concomitant]
     Dosage: 25 MICROGRAM
     Route: 062
     Dates: start: 20200504
  11. MEDROL [Concomitant]
     Active Substance: METHYLPREDNISOLONE
     Dosage: 4 MILLIGRAM
     Route: 048
     Dates: start: 20200612
  12. CLEXANE (ENOXAPARIN SODIUM) [Concomitant]
     Active Substance: ENOXAPARIN SODIUM
     Dosage: 0.4 MILLIGRAM
     Route: 058
     Dates: start: 20200228
  13. DABRAFENIB [Concomitant]
     Active Substance: DABRAFENIB
     Dosage: 75 MILLIGRAM
     Route: 048
     Dates: start: 20200708, end: 20200712
  14. T4 [Concomitant]
     Active Substance: LEVOTHYROXINE
     Dosage: 62 MICROGRAM
     Route: 048
     Dates: start: 201703
  15. LOSEC [Concomitant]
     Active Substance: OMEPRAZOLE
     Dosage: 20 MILLIGRAM
     Route: 048
     Dates: start: 20200228
  16. XOZAL [Concomitant]
     Active Substance: LEVOCETIRIZINE
     Dosage: 5 MILLIGRAM
     Route: 048
     Dates: start: 20200401

REACTIONS (1)
  - Septic shock [Fatal]

NARRATIVE: CASE EVENT DATE: 20200716
